FAERS Safety Report 7681210-7 (Version None)
Quarter: 2011Q3

REPORT INFORMATION
  Report Type: 
  Country: None (occurrence: None)
  Receive Date: 20110812
  Receipt Date: 20110808
  Transmission Date: 20111222
  Serious: Yes (Other)
  Sender: FDA-Public Use
  Company Number: US-ELI_LILLY_AND_COMPANY-US200911004041

PATIENT
  Sex: Male

DRUGS (6)
  1. BYETTA [Suspect]
     Dosage: 10 UG, BID
     Dates: start: 20070901, end: 20091101
  2. LISINOPRIL [Concomitant]
     Dosage: 20 MG, UNK
  3. SIMVASTATIN [Concomitant]
     Dosage: 40 MG, QD
  4. TYLENOL PM [Concomitant]
  5. GLYBURIDE [Concomitant]
     Dosage: 10 MG, BID
     Dates: start: 20080301, end: 20090501
  6. CIALIS [Concomitant]

REACTIONS (5)
  - PANCREATITIS [None]
  - BACK PAIN [None]
  - RENAL FAILURE [None]
  - BLOOD PRESSURE ABNORMAL [None]
  - BLOOD CHOLESTEROL ABNORMAL [None]
